FAERS Safety Report 6248699-1 (Version None)
Quarter: 2009Q2

REPORT INFORMATION
  Report Type: 
  Country: None (occurrence: None)
  Receive Date: 20090629
  Receipt Date: 20081003
  Transmission Date: 20091009
  Serious: No
  Sender: FDA-Public Use
  Company Number: US-TYCO HEALTHCARE/MALLINCKRODT-T200801615

PATIENT

DRUGS (2)
  1. TECHNESCAN MAG3 [Suspect]
     Indication: RENAL SCAN
     Dates: start: 20081003, end: 20081003
  2. ULTRA-TECHNEKOW [Concomitant]
     Indication: RENAL SCAN
     Dates: start: 20081003, end: 20081003

REACTIONS (1)
  - DRUG INEFFECTIVE [None]
